FAERS Safety Report 20823310 (Version 1)
Quarter: 2022Q2

REPORT INFORMATION
  Report Type: Spontaneous
  Country: US (occurrence: US)
  Receive Date: 20220513
  Receipt Date: 20220513
  Transmission Date: 20220720
  Serious: No
  Sender: FDA-Public Use
  Company Number: US-SA-SAC20220506001311

PATIENT
  Age: 61 Year
  Sex: Male

DRUGS (1)
  1. DUPIXENT [Suspect]
     Active Substance: DUPILUMAB
     Dosage: THERAPY START DATE : NOVEMBER , 2021
     Route: 058
     Dates: start: 202111

REACTIONS (2)
  - Nervousness [Unknown]
  - Tremor [Unknown]

NARRATIVE: CASE EVENT DATE: 20211118
